FAERS Safety Report 9804694 (Version 1)
Quarter: 2014Q1

REPORT INFORMATION
  Report Type: Spontaneous
  Country: AU (occurrence: AU)
  Receive Date: 20140108
  Receipt Date: 20140108
  Transmission Date: 20141002
  Serious: Yes (Other)
  Sender: FDA-Public Use
  Company Number: ALCN2013AU006433

PATIENT
  Age: 60 Year
  Sex: Female

DRUGS (2)
  1. MAXIDEX [Suspect]
     Indication: PROPHYLAXIS
     Dosage: UNK, QID
     Route: 047
  2. MAXIDEX [Suspect]
     Indication: OFF LABEL USE

REACTIONS (4)
  - Keratitis bacterial [Recovered/Resolved with Sequelae]
  - Ulcerative keratitis [Recovered/Resolved with Sequelae]
  - Corneal infiltrates [Recovered/Resolved]
  - Visual acuity reduced [Not Recovered/Not Resolved]
